FAERS Safety Report 7688545-2 (Version None)
Quarter: 2011Q3

REPORT INFORMATION
  Report Type: 
  Country: None (occurrence: None)
  Receive Date: 20110817
  Receipt Date: 20110817
  Transmission Date: 20111222
  Serious: Yes (Death, Life-Threatening, Hospitalization, Disabling, Congenital Anomaly, Other)
  Sender: FDA-Public Use
  Company Number: None

PATIENT
  Sex: Female
  Weight: 99.79 kg

DRUGS (4)
  1. CECLOR [Concomitant]
     Route: 048
  2. TORADOL [Concomitant]
  3. VICODIN [Concomitant]
  4. PHENERGAN HCL [Suspect]

REACTIONS (1)
  - MOVEMENT DISORDER [None]
